FAERS Safety Report 13752037 (Version 2)
Quarter: 2017Q3

REPORT INFORMATION
  Report Type: Spontaneous
  Country: US (occurrence: US)
  Receive Date: 20170713
  Receipt Date: 20170717
  Transmission Date: 20171127
  Serious: No
  Sender: FDA-Public Use
  Company Number: US-PFIZER INC-2017305228

PATIENT
  Sex: Male

DRUGS (1)
  1. DIDREX [Suspect]
     Active Substance: BENZPHETAMINE HYDROCHLORIDE
     Indication: INCREASED APPETITE
     Dosage: TAKE 2 WITHIN A 24 HOUR PERIOD
     Route: 048

REACTIONS (2)
  - Therapeutic response unexpected [Unknown]
  - Accident [Unknown]
